FAERS Safety Report 24926988 (Version 1)
Quarter: 2025Q1

REPORT INFORMATION
  Report Type: Report from Study
  Country: IN (occurrence: IN)
  Receive Date: 20250205
  Receipt Date: 20250205
  Transmission Date: 20250409
  Serious: Yes (Hospitalization)
  Sender: ROCHE
  Company Number: IN-ROCHE-10000070675

PATIENT
  Age: 68 Year
  Sex: Male
  Weight: 51.25 kg

DRUGS (3)
  1. TECENTRIQ [Suspect]
     Active Substance: ATEZOLIZUMAB
     Indication: Small cell lung cancer
     Route: 040
  2. TECENTRIQ [Suspect]
     Active Substance: ATEZOLIZUMAB
     Dosage: 9TH CYCLE
     Route: 040
     Dates: start: 20240615
  3. TECENTRIQ [Suspect]
     Active Substance: ATEZOLIZUMAB
     Dosage: 3RD CYCLE
     Route: 040
     Dates: start: 20240615

REACTIONS (10)
  - Respiratory rate increased [Unknown]
  - Off label use [Unknown]
  - Haemoglobin decreased [Unknown]
  - Neutrophil count decreased [Unknown]
  - Hypertension [Unknown]
  - Malaise [Unknown]
  - Blood pressure systolic increased [Unknown]
  - Surgery [Unknown]
  - Necrotic lymphadenopathy [Unknown]
  - Mediastinal lymphadenectomy [Unknown]

NARRATIVE: CASE EVENT DATE: 20241205
